FAERS Safety Report 9950407 (Version 1)
Quarter: 2014Q1

REPORT INFORMATION
  Report Type: Spontaneous
  Country: US (occurrence: US)
  Receive Date: 20140304
  Receipt Date: 20140304
  Transmission Date: 20141002
  Serious: No
  Sender: FDA-Public Use
  Company Number: US-ABBVIE-13P-163-1070686-00

PATIENT
  Sex: Female
  Weight: 52.66 kg

DRUGS (9)
  1. HUMIRA [Suspect]
     Indication: CROHN^S DISEASE
     Dates: start: 2008, end: 201209
  2. HUMIRA [Suspect]
     Dates: start: 201302, end: 201302
  3. HUMIRA [Suspect]
     Dates: start: 201302, end: 201302
  4. HUMIRA [Suspect]
     Dates: start: 2013
  5. ALPRAZOLAM [Concomitant]
     Indication: ANXIETY
  6. PROMETHAZINE [Concomitant]
     Indication: NAUSEA
  7. IMODIUM [Concomitant]
     Indication: DIARRHOEA
  8. TYLENOL [Concomitant]
     Indication: HEADACHE
  9. TYLENOL [Concomitant]
     Indication: PAIN

REACTIONS (8)
  - Weight decreased [Unknown]
  - Crohn^s disease [Unknown]
  - Crohn^s disease [Not Recovered/Not Resolved]
  - Drug dose omission [Unknown]
  - Malaise [Recovering/Resolving]
  - Fatigue [Recovering/Resolving]
  - Chills [Recovering/Resolving]
  - Decreased appetite [Recovering/Resolving]
